FAERS Safety Report 4501497-9 (Version None)
Quarter: 2004Q4

REPORT INFORMATION
  Report Type: 
  Country: None (occurrence: None)
  Receive Date: 20040928
  Receipt Date: 20040820
  Transmission Date: 20050328
  Serious: No
  Sender: FDA-Public Use
  Company Number: 04P-163-0271108-00

PATIENT
  Age: 52 Year
  Sex: Female
  Weight: 102.5129 kg

DRUGS (16)
  1. HUMIRA [Suspect]
     Indication: RHEUMATOID ARTHRITIS
     Dosage: 40 MG, 1 IN 2 WK, SUBCUTANEOUS
     Route: 058
     Dates: start: 20040810
  2. VICODIN [Concomitant]
  3. FENTANYL [Concomitant]
  4. PREDNISONE [Concomitant]
  5. CALCITONIN-SALMON [Concomitant]
  6. EYE DROPS [Concomitant]
  7. SULFASALAZINE [Concomitant]
  8. ATORVASTATIN [Concomitant]
  9. LANSOPRAZOLE [Concomitant]
  10. SERTRALINE HYDROCHLORIDE [Concomitant]
  11. BUPROPION HYDROCHLORIDE [Concomitant]
  12. PROPRANOLOL HYDROCHLORIDE [Concomitant]
  13. METHOTREXATE SODIUM [Concomitant]
  14. AZATHIOPRINE [Concomitant]
  15. FOLIC ACID [Concomitant]
  16. ERGOCALCIFEROL [Concomitant]

REACTIONS (2)
  - MUSCLE TIGHTNESS [None]
  - TOOTHACHE [None]
